FAERS Safety Report 12808059 (Version 2)
Quarter: 2016Q4

REPORT INFORMATION
  Report Type: Spontaneous
  Country: BR (occurrence: BR)
  Receive Date: 20161004
  Receipt Date: 20161101
  Transmission Date: 20170207
  Serious: Yes (Other)
  Sender: FDA-Public Use
  Company Number: BR-JNJFOC-20160930610

PATIENT
  Sex: Female
  Weight: 60 kg

DRUGS (1)
  1. ORTHO EVRA [Suspect]
     Active Substance: ETHINYL ESTRADIOL\NORELGESTROMIN
     Indication: CONTRACEPTION
     Route: 062

REACTIONS (6)
  - Headache [Unknown]
  - Abdominal pain [Unknown]
  - Drug dependence [Unknown]
  - Product adhesion issue [Unknown]
  - Drug dose omission [Unknown]
  - Product packaging issue [Unknown]
